FAERS Safety Report 23585720 (Version 1)
Quarter: 2024Q1

REPORT INFORMATION
  Report Type: Spontaneous
  Country: FR (occurrence: FR)
  Receive Date: 20240301
  Receipt Date: 20240301
  Transmission Date: 20240410
  Serious: Yes (Life-Threatening, Hospitalization)
  Sender: FDA-Public Use
  Company Number: FR-MYLANLABS-2024M1017982

PATIENT
  Age: 59 Year
  Sex: Male
  Weight: 100 kg

DRUGS (7)
  1. VERAPAMIL [Suspect]
     Active Substance: VERAPAMIL HYDROCHLORIDE
     Indication: Cluster headache
     Dosage: 240 MILLIGRAM, Q8H
     Route: 048
     Dates: end: 20230822
  2. VERAPAMIL [Suspect]
     Active Substance: VERAPAMIL HYDROCHLORIDE
     Dosage: 480 MILLIGRAM, Q8H
     Route: 048
     Dates: start: 20230822, end: 20230829
  3. ZOLMITRIPTAN [Concomitant]
     Active Substance: ZOLMITRIPTAN
     Dosage: UNK
     Route: 065
  4. TAMSULOSIN [Concomitant]
     Active Substance: TAMSULOSIN
     Dosage: UNK
     Route: 065
  5. Sibelium [Concomitant]
     Dosage: UNK
     Route: 065
  6. HERBALS\SAW PALMETTO [Concomitant]
     Active Substance: HERBALS\SAW PALMETTO
     Dosage: UNK
     Route: 065
  7. DAFALGAN CODEINE [Concomitant]
     Active Substance: ACETAMINOPHEN\CODEINE PHOSPHATE
     Dosage: UNK
     Route: 065

REACTIONS (8)
  - Acute respiratory distress syndrome [Recovered/Resolved]
  - Bundle branch block left [Recovered/Resolved]
  - Atrioventricular block first degree [Recovered/Resolved]
  - Prescribed overdose [Recovered/Resolved]
  - Off label use [Recovered/Resolved]
  - Asthenia [Unknown]
  - Gait disturbance [Unknown]
  - Dyspnoea [Unknown]

NARRATIVE: CASE EVENT DATE: 20230801
